FAERS Safety Report 17209925 (Version 1)
Quarter: 2019Q4

REPORT INFORMATION
  Report Type: Spontaneous
  Country: US (occurrence: US)
  Receive Date: 20191227
  Receipt Date: 20191227
  Transmission Date: 20200122
  Serious: Yes (Other)
  Sender: FDA-Public Use
  Company Number: US-BAUSCH-BL-2019-066332

PATIENT
  Age: 81 Year
  Sex: Male

DRUGS (4)
  1. JAKAFI [Suspect]
     Active Substance: RUXOLITINIB
     Dosage: 10 MG TABLETS QAM AND 10 MG QPM
     Route: 048
     Dates: start: 20190625
  2. JAKAFI [Suspect]
     Active Substance: RUXOLITINIB
     Indication: LEUKAEMIA
     Dosage: 15 MG TABLETS QPM AND 10 MG TABLETS QAM
     Route: 048
     Dates: start: 201906, end: 201906
  3. JAKAFI [Suspect]
     Active Substance: RUXOLITINIB
     Dosage: 10 MG QAM AND 15 MG QPM
     Route: 048
     Dates: start: 2019
  4. EFUDEX [Suspect]
     Active Substance: FLUOROURACIL
     Indication: SKIN CANCER
     Route: 065
     Dates: start: 2019

REACTIONS (2)
  - Pain [Unknown]
  - Micrographic skin surgery [Unknown]

NARRATIVE: CASE EVENT DATE: 2019
